FAERS Safety Report 8470776 (Version 3)
Quarter: 2013Q1

REPORT INFORMATION
  Report Type: Spontaneous
  Country: IT (occurrence: IT)
  Receive Date: 20120321
  Receipt Date: 20130108
  Transmission Date: 20140127
  Serious: Yes (Hospitalization)
  Sender: FDA-Public Use
  Company Number: PHHY2012IT024165

PATIENT
  Age: 51 Year
  Sex: Male

DRUGS (7)
  1. AFINITOR [Suspect]
     Indication: RENAL CELL CARCINOMA
     Dosage: 10 MG, DAILY
     Route: 048
     Dates: start: 20120214
  2. ZOMETA [Concomitant]
     Dosage: 4 MG, UNK
     Route: 042
     Dates: start: 20120229, end: 20120229
  3. DEPALGOS [Concomitant]
     Dosage: 60 MG, UNK
     Route: 048
     Dates: start: 20120111
  4. SOLDESAM [Concomitant]
     Dosage: 16 DRP, UNK
     Dates: start: 20120111
  5. PAZOPANIB [Concomitant]
     Dates: end: 20120206
  6. NAPRILENE [Concomitant]
  7. LOBIVON [Concomitant]

REACTIONS (2)
  - Myocardial infarction [Recovering/Resolving]
  - Chest pain [Recovering/Resolving]
